FAERS Safety Report 8948236 (Version 1)
Quarter: 2012Q4

REPORT INFORMATION
  Report Type: Spontaneous
  Country: US (occurrence: None)
  Receive Date: 20121126
  Receipt Date: 20121126
  Transmission Date: 20130627
  Serious: Yes (Disabling)
  Sender: FDA-Public Use
  Company Number: 1495370

PATIENT
  Age: 5 Year
  Sex: Male

DRUGS (2)
  1. VINCRISTINE SULFATE [Suspect]
     Dosage: Not reported (Unknown) Intravenous (not otherwise specified)
     Route: 042
  2. METHOTREXATE [Concomitant]

REACTIONS (6)
  - Pain in extremity [None]
  - Asthenia [None]
  - Immobile [None]
  - CSF protein increased [None]
  - Paralysis flaccid [None]
  - Areflexia [None]
